FAERS Safety Report 6701565-7 (Version None)
Quarter: 2010Q2

REPORT INFORMATION
  Report Type: 
  Country: None (occurrence: None)
  Receive Date: 20100429
  Receipt Date: 20100416
  Transmission Date: 20101027
  Serious: No
  Sender: FDA-Public Use
  Company Number: US-B.I. PHARMACEUTICALS,INC./RIDGEFIELD-2010-BP-03667BP

PATIENT
  Sex: Female

DRUGS (9)
  1. SPIRIVA [Suspect]
     Indication: CHRONIC OBSTRUCTIVE PULMONARY DISEASE
     Dosage: 18 MCG
     Route: 055
     Dates: start: 20080101
  2. SPIRIVA [Suspect]
     Indication: EMPHYSEMA
  3. PROPAFENONE HCL [Concomitant]
     Dosage: 450 MG
  4. ACTONEL [Concomitant]
  5. ZOVIRAX [Concomitant]
     Indication: ORAL HERPES
     Route: 061
  6. FINACEA [Concomitant]
     Indication: ROSACEA
     Route: 061
  7. CALCIUM [Concomitant]
     Dosage: 1500 MG
  8. MULTIVITAMIN/FIBER [Concomitant]
  9. ASPIRIN [Concomitant]

REACTIONS (2)
  - CYSTITIS [None]
  - URINARY RETENTION [None]
